FAERS Safety Report 8875440 (Version 1)
Quarter: 2012Q4

REPORT INFORMATION
  Report Type: Report from Study
  Country: FR (occurrence: FR)
  Receive Date: 20121023
  Receipt Date: 20121023
  Transmission Date: 20130627
  Serious: Yes (Hospitalization)
  Sender: FDA-Public Use
  Company Number: FR-ROCHE-1143785

PATIENT
  Age: 44 Year
  Sex: Female
  Weight: 48 kg

DRUGS (4)
  1. TRASTUZUMAB [Suspect]
     Indication: BREAST CANCER
     Dosage: loading dose; Last dose prior to SAE:24/Sep/2012
     Route: 042
     Dates: start: 20120924
  2. DOCETAXEL [Suspect]
     Indication: BREAST CANCER
     Dosage: Last dose prior to SAE:24/Sep/2012
     Route: 042
     Dates: start: 20120924
  3. PARACETAMOL [Concomitant]
     Route: 065
     Dates: start: 20121004, end: 20121005
  4. PERTUZUMAB [Suspect]
     Indication: BREAST CANCER
     Dosage: Loading dose; Last dose prior to SAE:24/Sep/2012
     Route: 042
     Dates: start: 20120924

REACTIONS (1)
  - Febrile bone marrow aplasia [Recovered/Resolved]
